FAERS Safety Report 25452709 (Version 3)
Quarter: 2025Q2

REPORT INFORMATION
  Report Type: Report from Study
  Country: CA (occurrence: CA)
  Receive Date: 20250618
  Receipt Date: 20250630
  Transmission Date: 20250717
  Serious: Yes (Hospitalization)
  Sender: TAKEDA
  Company Number: CA-TAKEDA-2025TUS054537

PATIENT
  Age: 60 Year
  Sex: Male

DRUGS (6)
  1. VEDOLIZUMAB [Suspect]
     Active Substance: VEDOLIZUMAB
     Indication: Colitis ulcerative
  2. VEDOLIZUMAB [Suspect]
     Active Substance: VEDOLIZUMAB
     Dosage: 300 MILLIGRAM, Q4WEEKS
     Dates: start: 20230920
  3. VEDOLIZUMAB [Suspect]
     Active Substance: VEDOLIZUMAB
     Indication: Colitis ulcerative
     Dosage: 108 MILLIGRAM, Q2WEEKS
     Dates: start: 20230628
  4. PENTASA [Concomitant]
     Active Substance: MESALAMINE
  5. PREDNISONE [Concomitant]
     Active Substance: PREDNISONE
  6. ASPIRIN [Concomitant]
     Active Substance: ASPIRIN

REACTIONS (6)
  - Listless [Unknown]
  - Gait disturbance [Unknown]
  - Heart rate increased [Unknown]
  - Malaise [Unknown]
  - Urinary tract infection [Recovered/Resolved]
  - Off label use [Unknown]

NARRATIVE: CASE EVENT DATE: 20230920
